FAERS Safety Report 24028587 (Version 2)
Quarter: 2024Q3

REPORT INFORMATION
  Report Type: Spontaneous
  Country: US (occurrence: US)
  Receive Date: 20240628
  Receipt Date: 20240724
  Transmission Date: 20241017
  Serious: No
  Sender: SANOFI AVENTIS
  Company Number: US-SA-SAC20240619000689

PATIENT
  Sex: Female
  Weight: 68 kg

DRUGS (1)
  1. DUPIXENT [Suspect]
     Active Substance: DUPILUMAB
     Indication: Dermatitis atopic
     Dosage: 300 MG, QOW
     Route: 058
     Dates: start: 20230619

REACTIONS (4)
  - Rash papular [Not Recovered/Not Resolved]
  - Pruritus [Not Recovered/Not Resolved]
  - Erythema [Not Recovered/Not Resolved]
  - Rash [Unknown]

NARRATIVE: CASE EVENT DATE: 20240701
